FAERS Safety Report 9760846 (Version 2)
Quarter: 2014Q3

REPORT INFORMATION
  Report Type: Spontaneous
  Country: US (occurrence: US)
  Receive Date: 20131216
  Receipt Date: 20140828
  Transmission Date: 20150326
  Serious: No
  Sender: FDA-Public Use
  Company Number: US-BIOGENIDEC-2013BI108370

PATIENT
  Sex: Female

DRUGS (2)
  1. AVONEX [Concomitant]
     Active Substance: INTERFERON BETA-1A
     Indication: MULTIPLE SCLEROSIS
     Route: 030
  2. TECFIDERA [Suspect]
     Active Substance: DIMETHYL FUMARATE
     Indication: RELAPSING-REMITTING MULTIPLE SCLEROSIS
     Dates: start: 20130930

REACTIONS (6)
  - Hunger [Not Recovered/Not Resolved]
  - Urinary incontinence [Unknown]
  - Flushing [Recovered/Resolved]
  - Flatulence [Recovered/Resolved]
  - Thyroid disorder [Not Recovered/Not Resolved]
  - Fatigue [Unknown]
